FAERS Safety Report 5208293-8 (Version None)
Quarter: 2007Q1

REPORT INFORMATION
  Report Type: 
  Country: None (occurrence: None)
  Receive Date: 20070110
  Receipt Date: 20070110
  Transmission Date: 20070707
  Serious: Yes (Disabling)
  Sender: FDA-Public Use
  Company Number: None

PATIENT
  Sex: Male
  Weight: 110.2241 kg

DRUGS (1)
  1. CIPRO [Suspect]
     Indication: EPIDIDYMITIS
     Dosage: 500 MG 2X/DAY ORAL
     Route: 048
     Dates: start: 20040830, end: 20040912

REACTIONS (5)
  - ARTHRALGIA [None]
  - DISEASE PROGRESSION [None]
  - FATIGUE [None]
  - PAIN IN EXTREMITY [None]
  - TENDON PAIN [None]
